FAERS Safety Report 7496232-9 (Version None)
Quarter: 2011Q2

REPORT INFORMATION
  Report Type: 
  Country: None (occurrence: None)
  Receive Date: 20110523
  Receipt Date: 20110517
  Transmission Date: 20111010
  Serious: Yes (Life-Threatening, Other)
  Sender: FDA-Public Use
  Company Number: PHHY2011US40461

PATIENT
  Sex: Female

DRUGS (5)
  1. DIOVAN [Suspect]
     Dosage: 160 MG, QD
     Route: 048
  2. VERPAMIL HCL [Concomitant]
     Dosage: 1 DF, 240 MG
  3. HYDROCHLOROTHIAZIDE [Suspect]
     Dosage: 1/2 TABLETS 3 TIMES PER DAY
  4. SIMVASTATIN [Concomitant]
  5. CLONAZEPAM [Concomitant]
     Dosage: 1 DF, 5 MG

REACTIONS (26)
  - RENAL IMPAIRMENT [None]
  - CARDIOVASCULAR INSUFFICIENCY [None]
  - DRY THROAT [None]
  - RENAL PAIN [None]
  - OEDEMA PERIPHERAL [None]
  - BACK PAIN [None]
  - DYSURIA [None]
  - DIZZINESS [None]
  - FEELING ABNORMAL [None]
  - VISION BLURRED [None]
  - ARTHRALGIA [None]
  - DYSKINESIA [None]
  - PAIN IN EXTREMITY [None]
  - MUSCULOSKELETAL PAIN [None]
  - COUGH [None]
  - NERVOUS SYSTEM DISORDER [None]
  - CONDITION AGGRAVATED [None]
  - ARTHRITIS [None]
  - MALAISE [None]
  - NAUSEA [None]
  - ASTHENIA [None]
  - SKIN DISCOLOURATION [None]
  - UPPER-AIRWAY COUGH SYNDROME [None]
  - RENAL FAILURE ACUTE [None]
  - PALPITATIONS [None]
  - INSOMNIA [None]
